FAERS Safety Report 25704018 (Version 1)
Quarter: 2025Q3

REPORT INFORMATION
  Report Type: Spontaneous
  Country: CN (occurrence: CN)
  Receive Date: 20250820
  Receipt Date: 20250820
  Transmission Date: 20251021
  Serious: Yes (Life-Threatening, Other)
  Sender: Haleon PLC
  Company Number: CN-HALEON-2258318

PATIENT
  Age: 24 Year
  Sex: Female
  Weight: 55 kg

DRUGS (2)
  1. IBUPROFEN [Suspect]
     Active Substance: IBUPROFEN
     Indication: Intentional self-injury
     Route: 048
     Dates: start: 20250710, end: 20250710
  2. BOS TAURUS GALLSTONE\METRONIDAZOLE [Suspect]
     Active Substance: BOS TAURUS GALLSTONE\METRONIDAZOLE
     Indication: Intentional self-injury
     Route: 048
     Dates: start: 20250710, end: 20250710

REACTIONS (9)
  - Delirium [Recovering/Resolving]
  - Toxicity to various agents [Recovering/Resolving]
  - Electrocardiogram Q wave abnormal [Recovering/Resolving]
  - Sinus tachycardia [Recovering/Resolving]
  - Intentional overdose [Recovering/Resolving]
  - Mania [Recovering/Resolving]
  - Foaming at mouth [Recovering/Resolving]
  - Dysphoria [Recovering/Resolving]
  - Confusional state [Recovering/Resolving]

NARRATIVE: CASE EVENT DATE: 20250710
